FAERS Safety Report 13065917 (Version 2)
Quarter: 2017Q1

REPORT INFORMATION
  Report Type: Spontaneous
  Country: JP (occurrence: JP)
  Receive Date: 20161227
  Receipt Date: 20170123
  Transmission Date: 20170428
  Serious: Yes (Other)
  Sender: FDA-Public Use
  Company Number: JP-TEVA-2016-001691

PATIENT
  Age: 89 Year
  Sex: Female

DRUGS (1)
  1. RISEDRONIC ACID [Suspect]
     Active Substance: RISEDRONIC ACID
     Dosage: UNKNOWN
     Route: 048

REACTIONS (2)
  - Ulna fracture [Unknown]
  - Atypical fracture [Unknown]
